FAERS Safety Report 18377641 (Version 3)
Quarter: 2021Q3

REPORT INFORMATION
  Report Type: Spontaneous
  Country: US (occurrence: US)
  Receive Date: 20201013
  Receipt Date: 20210730
  Transmission Date: 20211014
  Serious: Yes (Other)
  Sender: FDA-Public Use
  Company Number: US-SA-2020SA281021

PATIENT
  Age: 49 Year
  Sex: Male

DRUGS (2)
  1. FABRAZYME [Suspect]
     Active Substance: AGALSIDASE BETA
     Indication: FABRY^S DISEASE
     Dosage: 75 MG, QOW
     Route: 041
     Dates: start: 20190513
  2. FABRAZYME [Suspect]
     Active Substance: AGALSIDASE BETA
     Dosage: 75 MG, QOW (5 MG AND 70 MG, EVERY TWO WEEKS)
     Route: 041
     Dates: start: 20190517

REACTIONS (3)
  - Blood pressure decreased [Unknown]
  - Product dose omission issue [Unknown]
  - End stage renal disease [Unknown]

NARRATIVE: CASE EVENT DATE: 20201127
